FAERS Safety Report 8277295-X (Version None)
Quarter: 2012Q2

REPORT INFORMATION
  Report Type: 
  Country: None (occurrence: None)
  Receive Date: 20120412
  Receipt Date: 20120408
  Transmission Date: 20120825
  Serious: Yes (Other)
  Sender: FDA-Public Use
  Company Number: US-GLAXOSMITHKLINE-A0973261A

PATIENT
  Sex: Male

DRUGS (1)
  1. PAROXETINE HYDROCHLORIDE [Suspect]
     Indication: PRODUCT USED FOR UNKNOWN INDICATION

REACTIONS (10)
  - SPEECH DISORDER [None]
  - NIGHTMARE [None]
  - AGGRESSION [None]
  - MALAISE [None]
  - AVOIDANT PERSONALITY DISORDER [None]
  - AMNESIA [None]
  - ANXIETY [None]
  - HALLUCINATION [None]
  - DEREALISATION [None]
  - ILLUSION [None]
